FAERS Safety Report 6895046-8 (Version None)
Quarter: 2010Q3

REPORT INFORMATION
  Report Type: 
  Country: None (occurrence: None)
  Receive Date: 20100802
  Receipt Date: 20100723
  Transmission Date: 20110219
  Serious: Yes (Other)
  Sender: FDA-Public Use
  Company Number: ES-ASTRAZENECA-2010SE33130

PATIENT
  Age: 67 Year
  Sex: Female
  Weight: 87 kg

DRUGS (7)
  1. CRESTOR [Suspect]
     Indication: HYPERCHOLESTEROLAEMIA
     Route: 048
     Dates: start: 20100303, end: 20100304
  2. ASPIRIN [Concomitant]
     Indication: ACUTE MYOCARDIAL INFARCTION
  3. ATENOL [Concomitant]
     Indication: ACUTE MYOCARDIAL INFARCTION
  4. DOXEZOSIN [Concomitant]
  5. TELMISARTAN [Concomitant]
     Indication: HYPERTENSION
  6. HYDROCHLOROTHIAZIDE [Concomitant]
     Indication: HYPERTENSION
  7. EZETIMIBE [Concomitant]

REACTIONS (4)
  - ABDOMINAL PAIN [None]
  - CHOKING SENSATION [None]
  - DYSPNOEA [None]
  - FACE OEDEMA [None]
